FAERS Safety Report 15966525 (Version 1)
Quarter: 2019Q1

REPORT INFORMATION
  Report Type: Spontaneous
  Country: US (occurrence: US)
  Receive Date: 20190215
  Receipt Date: 20190215
  Transmission Date: 20190418
  Serious: No
  Sender: FDA-Public Use
  Company Number: US-TEVA-2019-US-1002671

PATIENT
  Age: 72 Year
  Sex: Male

DRUGS (3)
  1. NUVIGIL [Suspect]
     Active Substance: ARMODAFINIL
     Indication: SLEEP APNOEA SYNDROME
     Route: 065
     Dates: start: 201812, end: 201901
  2. ADVIL [Concomitant]
     Active Substance: IBUPROFEN
  3. VENLAFAXINE ER [Concomitant]
     Active Substance: VENLAFAXINE HYDROCHLORIDE
     Dosage: 300 MILLIGRAM DAILY;

REACTIONS (2)
  - Drug effect variable [Unknown]
  - Hypersomnia [Unknown]
